FAERS Safety Report 6903630-8 (Version None)
Quarter: 2010Q3

REPORT INFORMATION
  Report Type: 
  Country: None (occurrence: None)
  Receive Date: 20100803
  Receipt Date: 20081103
  Transmission Date: 20110219
  Serious: No
  Sender: FDA-Public Use
  Company Number: US-PFIZER INC-2008092579

PATIENT
  Sex: Female
  Weight: 70.454 kg

DRUGS (9)
  1. LYRICA [Suspect]
     Indication: FIBROMYALGIA
     Dates: end: 20080101
  2. LYRICA [Suspect]
     Indication: NEUROPATHY PERIPHERAL
  3. ALPRAZOLAM [Suspect]
     Indication: ANXIETY
     Dates: start: 20080101
  4. ADVAIR DISKUS 100/50 [Concomitant]
     Indication: ASTHMA
  5. AVALIDE [Concomitant]
     Indication: HYPERTENSION
  6. AMLODIPINE [Concomitant]
  7. OMEPRAZOLE [Concomitant]
     Indication: GASTROOESOPHAGEAL REFLUX DISEASE
  8. LOVASTATIN [Concomitant]
     Indication: BLOOD CHOLESTEROL INCREASED
  9. CYMBALTA [Concomitant]

REACTIONS (6)
  - ANXIETY [None]
  - DIZZINESS [None]
  - DRUG INEFFECTIVE [None]
  - HYPERHIDROSIS [None]
  - TREMOR [None]
  - VISION BLURRED [None]
